FAERS Safety Report 21415939 (Version 2)
Quarter: 2022Q4

REPORT INFORMATION
  Report Type: Spontaneous
  Country: CA (occurrence: CA)
  Receive Date: 20221006
  Receipt Date: 20221116
  Transmission Date: 20230113
  Serious: Yes (Hospitalization, Other)
  Sender: FDA-Public Use
  Company Number: CA-UNITED THERAPEUTICS-UNT-2022-022539

PATIENT
  Sex: Female

DRUGS (1)
  1. REMODULIN [Suspect]
     Active Substance: TREPROSTINIL
     Indication: Pulmonary arterial hypertension
     Dosage: 0.125 ?G/KG, CONTINUING
     Route: 041

REACTIONS (12)
  - Vascular device infection [Not Recovered/Not Resolved]
  - Device related sepsis [Not Recovered/Not Resolved]
  - Intra-abdominal haemorrhage [Unknown]
  - Pneumonia [Unknown]
  - Dyspnoea [Not Recovered/Not Resolved]
  - Haematemesis [Recovered/Resolved]
  - Device related infection [Recovered/Resolved]
  - Blood pressure abnormal [Recovering/Resolving]
  - Oxygen saturation decreased [Recovering/Resolving]
  - Decreased appetite [Unknown]
  - Pyrexia [Recovered/Resolved]
  - Blood culture positive [Unknown]

NARRATIVE: CASE EVENT DATE: 20220101
